FAERS Safety Report 15378655 (Version 1)
Quarter: 2018Q3

REPORT INFORMATION
  Report Type: Spontaneous
  Country: JP (occurrence: JP)
  Receive Date: 20180913
  Receipt Date: 20180913
  Transmission Date: 20181010
  Serious: Yes (Other)
  Sender: FDA-Public Use
  Company Number: JP-SA-2018SA252325

PATIENT
  Age: 5 Decade
  Sex: Female

DRUGS (3)
  1. ALLERMIST [Suspect]
     Active Substance: FLUTICASONE FUROATE
     Dosage: UNK UNK, UNK
     Route: 045
     Dates: start: 20180827
  2. LEVOCETIRIZINE [Suspect]
     Active Substance: LEVOCETIRIZINE
     Indication: HYPERSENSITIVITY
     Dosage: UNK
     Route: 048
  3. ALLERMIST [Suspect]
     Active Substance: FLUTICASONE FUROATE
     Indication: PRODUCT USED FOR UNKNOWN INDICATION
     Dosage: UNK UNK, UNK
     Route: 045

REACTIONS (15)
  - Parotid gland enlargement [Unknown]
  - Nasal dryness [Unknown]
  - Accidental overdose [Unknown]
  - Dry mouth [Unknown]
  - Bipolar I disorder [Unknown]
  - Aptyalism [Unknown]
  - Gastric disorder [Unknown]
  - Nasal congestion [Unknown]
  - Oesophageal polyp [Unknown]
  - Intentional product use issue [Unknown]
  - Mucosal dryness [Unknown]
  - Gastric polyps [Unknown]
  - Nasopharyngitis [Unknown]
  - Nasal discomfort [Unknown]
  - Ear disorder [Unknown]

NARRATIVE: CASE EVENT DATE: 20180827
